FAERS Safety Report 22618756 (Version 2)
Quarter: 2024Q3

REPORT INFORMATION
  Report Type: Spontaneous
  Country: TR (occurrence: TR)
  Receive Date: 20230620
  Receipt Date: 20240711
  Transmission Date: 20241017
  Serious: No
  Sender: PIERRE FABRE MEDICAMENT
  Company Number: TR-PFM-2023-00342

PATIENT
  Age: 15 Month
  Sex: Male

DRUGS (2)
  1. PROPRANOLOL [Suspect]
     Active Substance: PROPRANOLOL HYDROCHLORIDE
     Indication: Haemangioma
     Dosage: 2 MG/KG/DAY
     Route: 065
  2. SIROLIMUS [Concomitant]
     Active Substance: SIROLIMUS
     Indication: Haemangioma
     Dosage: UNK
     Route: 065

REACTIONS (3)
  - Drug ineffective [Unknown]
  - Product administered to patient of inappropriate age [Unknown]
  - Off label use [Unknown]
